FAERS Safety Report 15336912 (Version 1)
Quarter: 2018Q3

REPORT INFORMATION
  Report Type: Spontaneous
  Country: US (occurrence: US)
  Receive Date: 20180831
  Receipt Date: 20180831
  Transmission Date: 20181010
  Serious: No
  Sender: FDA-Public Use
  Company Number: US-SHIRE-US201833276

PATIENT
  Age: 71 Year
  Sex: Female
  Weight: 82.1 kg

DRUGS (1)
  1. XIIDRA [Suspect]
     Active Substance: LIFITEGRAST
     Indication: DRY EYE
     Dosage: 1 GTT, 2X/DAY:BID 5 PERCENT SOLUTION, 1 GTT BOTH EYES
     Route: 047
     Dates: start: 20180504

REACTIONS (10)
  - Diplopia [Not Recovered/Not Resolved]
  - Instillation site burn [Not Recovered/Not Resolved]
  - Instillation site reaction [Unknown]
  - Visual impairment [Not Recovered/Not Resolved]
  - Inappropriate schedule of drug administration [Recovered/Resolved]
  - Eye pain [Not Recovered/Not Resolved]
  - Vision blurred [Not Recovered/Not Resolved]
  - Impaired driving ability [Not Recovered/Not Resolved]
  - Instillation site discharge [Recovering/Resolving]
  - Instillation site erythema [Not Recovered/Not Resolved]

NARRATIVE: CASE EVENT DATE: 20180504
